FAERS Safety Report 25620244 (Version 1)
Quarter: 2025Q3

REPORT INFORMATION
  Report Type: Other
  Country: BR (occurrence: BR)
  Receive Date: 20250730
  Receipt Date: 20250730
  Transmission Date: 20251021
  Serious: Yes (Hospitalization, Other)
  Sender: BIONPHARMA INC.
  Company Number: BR-Bion-015153

PATIENT
  Age: 5 Year
  Sex: Female

DRUGS (1)
  1. VALPROIC ACID [Suspect]
     Active Substance: VALPROIC ACID
     Indication: Product used for unknown indication

REACTIONS (3)
  - Toxicity to various agents [Unknown]
  - Seizure [Recovered/Resolved]
  - Product administration error [Unknown]
